FAERS Safety Report 20814260 (Version 1)
Quarter: 2022Q2

REPORT INFORMATION
  Report Type: Spontaneous
  Country: US (occurrence: None)
  Receive Date: 20220510
  Receipt Date: 20220510
  Transmission Date: 20220721
  Serious: No
  Sender: FDA-Public Use
  Company Number: None

PATIENT
  Age: 29 Year
  Sex: Female
  Weight: 121.5 kg

DRUGS (1)
  1. AIMOVIG [Suspect]
     Active Substance: ERENUMAB-AOOE
     Indication: Migraine
     Dosage: FREQUENCY : MONTHLY;?
     Route: 058
     Dates: start: 20220117, end: 20220118

REACTIONS (7)
  - Weight increased [None]
  - Heart rate increased [None]
  - Feeling of despair [None]
  - Asthenia [None]
  - Insomnia [None]
  - Irritable bowel syndrome [None]
  - Migraine [None]

NARRATIVE: CASE EVENT DATE: 20220117
